FAERS Safety Report 13642978 (Version 1)
Quarter: 2017Q2

REPORT INFORMATION
  Report Type: Spontaneous
  Country: AR (occurrence: AR)
  Receive Date: 20170612
  Receipt Date: 20170612
  Transmission Date: 20170830
  Serious: Yes (Other)
  Sender: FDA-Public Use
  Company Number: AR-PFIZER INC-2017255568

PATIENT
  Age: 13 Year
  Sex: Female

DRUGS (1)
  1. GENOTROPIN [Suspect]
     Active Substance: SOMATROPIN
     Indication: TURNER^S SYNDROME
     Dosage: 1.5 TO 2 MG, CYCLIC (6X/WEEK)
     Dates: start: 20140926, end: 201704

REACTIONS (2)
  - Intentional product misuse [Not Recovered/Not Resolved]
  - Bipolar disorder [Not Recovered/Not Resolved]
